FAERS Safety Report 10374335 (Version 1)
Quarter: 2014Q3

REPORT INFORMATION
  Report Type: Spontaneous
  Country: US (occurrence: US)
  Receive Date: 20140811
  Receipt Date: 20140811
  Transmission Date: 20150326
  Serious: No
  Sender: FDA-Public Use
  Company Number: US-BIOGENIDEC-2014BI076563

PATIENT
  Age: 53 Year
  Sex: Female

DRUGS (7)
  1. TECFIDERA [Suspect]
     Active Substance: DIMETHYL FUMARATE
     Indication: MULTIPLE SCLEROSIS
     Route: 048
  2. BACLOFEN. [Concomitant]
     Active Substance: BACLOFEN
  3. CALCIUM + D3 [Concomitant]
     Active Substance: CALCIUM\CHOLECALCIFEROL
  4. ASPIRIN ADULT LOW STRENGTH [Concomitant]
     Active Substance: ASPIRIN
  5. TYLENOL PM EXTRA STRENGTH [Concomitant]
     Active Substance: ACETAMINOPHEN\DIPHENHYDRAMINE HYDROCHLORIDE
  6. DAILY VALUE MULTIVITAMIN [Concomitant]
  7. NITROFURANTOIN (MACROCRYSTALS) [Concomitant]
     Active Substance: NITROFURANTOIN

REACTIONS (1)
  - Drug ineffective [Unknown]
